FAERS Safety Report 6170733-8 (Version None)
Quarter: 2009Q2

REPORT INFORMATION
  Report Type: 
  Country: None (occurrence: None)
  Receive Date: 20090427
  Receipt Date: 20090414
  Transmission Date: 20091009
  Serious: Yes (Hospitalization, Other)
  Sender: FDA-Public Use
  Company Number: 2009SP008018

PATIENT
  Age: 14 Year
  Sex: Male

DRUGS (1)
  1. CORICIDIN [Suspect]
     Indication: DRUG USE FOR UNKNOWN INDICATION
     Dosage: 16 DF;PO
     Route: 048
     Dates: start: 20090407, end: 20090407

REACTIONS (3)
  - DISORIENTATION [None]
  - FALL [None]
  - OVERDOSE [None]
